FAERS Safety Report 23993186 (Version 3)
Quarter: 2024Q4

REPORT INFORMATION
  Report Type: Spontaneous
  Country: US (occurrence: US)
  Receive Date: 20240620
  Receipt Date: 20241123
  Transmission Date: 20250115
  Serious: No
  Sender: AMGEN
  Company Number: US-AMGEN-USASP2024119293

PATIENT
  Sex: Female

DRUGS (5)
  1. OTEZLA [Suspect]
     Active Substance: APREMILAST
     Indication: Psoriasis
     Dosage: 30 MILLIGRAM, BID
     Route: 048
     Dates: start: 20190608
  2. B12 [Concomitant]
     Dosage: 1000 MICROGRAM
     Route: 065
  3. GLATIRAMER [Concomitant]
     Active Substance: GLATIRAMER
     Dosage: 40 MILLIGRAM
     Route: 065
  4. VITAMIN D3 [Concomitant]
     Active Substance: CHOLECALCIFEROL
     Dosage: 2000 INTERNATIONAL UNIT
     Route: 065
  5. IRON [Concomitant]
     Active Substance: IRON
     Dosage: 65 MILLIGRAM
     Route: 065

REACTIONS (3)
  - Therapy non-responder [Unknown]
  - Pain [Unknown]
  - Impaired quality of life [Unknown]
